FAERS Safety Report 6137541-5 (Version None)
Quarter: 2009Q1

REPORT INFORMATION
  Report Type: 
  Country: None (occurrence: None)
  Receive Date: 20090327
  Receipt Date: 20090316
  Transmission Date: 20090719
  Serious: Yes (Other)
  Sender: FDA-Public Use
  Company Number: 232051K09USA

PATIENT
  Age: 59 Year
  Sex: Female

DRUGS (3)
  1. REBIF [Suspect]
     Indication: MULTIPLE SCLEROSIS
     Dosage: 44 MCG, 3 IN 1 WEEKS, SUBCUTANEOUS; 44 MCG, 1 IN 1 WEEKS, SUBCUTANEOUS
     Route: 058
     Dates: start: 20081113
  2. REBIF [Suspect]
     Indication: MULTIPLE SCLEROSIS
     Dosage: 44 MCG, 3 IN 1 WEEKS, SUBCUTANEOUS; 44 MCG, 1 IN 1 WEEKS, SUBCUTANEOUS
     Route: 058
     Dates: start: 20090101
  3. ANTIBIOTIC (ANTIBIOTICS) [Concomitant]

REACTIONS (2)
  - CARTILAGE INJURY [None]
  - SYNOVIAL CYST [None]
